FAERS Safety Report 13369446 (Version 1)
Quarter: 2017Q1

REPORT INFORMATION
  Report Type: Spontaneous
  Country: US (occurrence: US)
  Receive Date: 20170324
  Receipt Date: 20170324
  Transmission Date: 20170429
  Serious: No
  Sender: FDA-Public Use
  Company Number: None

PATIENT
  Age: 52 Year
  Sex: Female

DRUGS (1)
  1. TALTZ [Suspect]
     Active Substance: IXEKIZUMAB
     Indication: PSORIASIS

REACTIONS (7)
  - Rash [None]
  - Psoriasis [None]
  - Pain in extremity [None]
  - Dry skin [None]
  - Neuropathy peripheral [None]
  - Back pain [None]
  - Joint swelling [None]

NARRATIVE: CASE EVENT DATE: 20170324
